FAERS Safety Report 15405463 (Version 1)
Quarter: 2018Q3

REPORT INFORMATION
  Report Type: Report from Study
  Country: CA (occurrence: CA)
  Receive Date: 20180920
  Receipt Date: 20180920
  Transmission Date: 20181010
  Serious: Yes (Other)
  Sender: FDA-Public Use
  Company Number: CA-BRISTOL-MYERS SQUIBB COMPANY-BMS-2018-077116

PATIENT
  Age: 53 Year
  Sex: Female

DRUGS (1)
  1. ABATACEPT [Suspect]
     Active Substance: ABATACEPT
     Indication: SYSTEMIC LUPUS ERYTHEMATOSUS
     Dosage: 500 MG, Q4WK
     Route: 065
     Dates: start: 2014

REACTIONS (5)
  - Abdominal pain [Unknown]
  - Neck pain [Unknown]
  - Spinal pain [Unknown]
  - Product use in unapproved indication [Unknown]
  - Diverticulitis [Unknown]

NARRATIVE: CASE EVENT DATE: 201712
